FAERS Safety Report 7930718-5 (Version None)
Quarter: 2011Q4

REPORT INFORMATION
  Report Type: 
  Country: None (occurrence: None)
  Receive Date: 20111117
  Receipt Date: 20111117
  Transmission Date: 20120403
  Serious: Yes (Life-Threatening, Hospitalization)
  Sender: FDA-Public Use
  Company Number: None

PATIENT
  Sex: Male
  Weight: 72 kg

DRUGS (3)
  1. DIVALPROEX SODIUM [Suspect]
     Indication: EPILEPSY
     Dosage: DEPAKOTE 1500MG DAILY PO
     Route: 048
     Dates: start: 20111104, end: 20111109
  2. ABILIFY [Concomitant]
  3. ZONEGRAN [Suspect]
     Indication: EPILEPSY
     Dosage: ZONEGRAN 500MG DAILY PO
     Route: 048
     Dates: start: 20110501, end: 20111109

REACTIONS (3)
  - CONVULSION [None]
  - ENCEPHALOPATHY [None]
  - AMMONIA INCREASED [None]
